FAERS Safety Report 4812969-1 (Version None)
Quarter: 2005Q4

REPORT INFORMATION
  Report Type: 
  Country: None (occurrence: None)
  Receive Date: 20051028
  Receipt Date: 20050525
  Transmission Date: 20060501
  Serious: No
  Sender: FDA-Public Use
  Company Number: US-GLAXOSMITHKLINE-A0560124A

PATIENT
  Sex: Female

DRUGS (10)
  1. ADVAIR DISKUS 100/50 [Suspect]
     Indication: ASTHMA
     Dosage: 1BLS TWICE PER DAY
     Route: 055
     Dates: start: 20050505, end: 20050522
  2. FLOVENT [Suspect]
     Indication: ASTHMA
     Route: 055
  3. ALBUTEROL [Concomitant]
  4. HYDROCHLOROTHIAZIDE [Concomitant]
  5. POTASSIUM [Concomitant]
  6. UNKNOWN MEDICATION [Concomitant]
     Indication: DEPRESSION
  7. ACETAMINOPHEN [Concomitant]
  8. IBUPROFEN [Concomitant]
  9. OXYGEN [Concomitant]
  10. FUROSEMIDE [Concomitant]
     Dosage: 20MG UNKNOWN
     Route: 065

REACTIONS (4)
  - EYE PAIN [None]
  - HAEMORRHAGE SUBCUTANEOUS [None]
  - IRITIS [None]
  - SHOULDER PAIN [None]
